FAERS Safety Report 7720048-9 (Version None)
Quarter: 2011Q3

REPORT INFORMATION
  Report Type: 
  Country: None (occurrence: None)
  Receive Date: 20110831
  Receipt Date: 20110824
  Transmission Date: 20111222
  Serious: Yes (Other)
  Sender: FDA-Public Use
  Company Number: US-BIOGENIDEC-2011BI032253

PATIENT
  Age: 43 Year
  Sex: Female

DRUGS (5)
  1. NEURONTIN [Concomitant]
     Indication: BACK PAIN
  2. AVONEX [Suspect]
     Indication: MULTIPLE SCLEROSIS
     Route: 030
     Dates: start: 20100720
  3. OXYCODONE HCL [Concomitant]
     Indication: BACK PAIN
  4. NEURONTIN [Concomitant]
     Indication: PAIN IN EXTREMITY
  5. OXYCODONE HCL [Concomitant]
     Indication: PAIN IN EXTREMITY

REACTIONS (4)
  - CONVULSION [None]
  - MOBILITY DECREASED [None]
  - TONGUE DISORDER [None]
  - FEELING HOT [None]
